FAERS Safety Report 26190668 (Version 1)
Quarter: 2025Q4

REPORT INFORMATION
  Report Type: Spontaneous
  Country: EU (occurrence: EU)
  Receive Date: 20251223
  Receipt Date: 20251223
  Transmission Date: 20260117
  Serious: Yes (Other)
  Sender: RANBAXY
  Company Number: EU-SUN PHARMACEUTICAL INDUSTRIES INC-2025R1-542842

PATIENT
  Age: 35 Year
  Sex: Male

DRUGS (4)
  1. DIGOXIN [Suspect]
     Active Substance: DIGOXIN
     Indication: Cardiogenic shock
     Dosage: UNK
     Route: 065
  2. AMIODARONE [Suspect]
     Active Substance: AMIODARONE
     Indication: Cardiogenic shock
     Dosage: UNK
     Route: 065
  3. FUROSEMIDE [Suspect]
     Active Substance: FUROSEMIDE
     Indication: Cardiogenic shock
     Dosage: UNK
     Route: 065
  4. MILRINONE [Suspect]
     Active Substance: MILRINONE
     Indication: Cardiogenic shock
     Dosage: UNK
     Route: 065

REACTIONS (1)
  - Condition aggravated [Unknown]
